FAERS Safety Report 4687595-8 (Version None)
Quarter: 2005Q2

REPORT INFORMATION
  Report Type: 
  Country: None (occurrence: None)
  Receive Date: 20050610
  Receipt Date: 20050530
  Transmission Date: 20051028
  Serious: Yes (Life-Threatening, Hospitalization)
  Sender: FDA-Public Use
  Company Number: FR-BRISTOL-MYERS SQUIBB COMPANY-12991121

PATIENT
  Age: 75 Year
  Sex: Female

DRUGS (5)
  1. GLUCOPHAGE [Suspect]
     Indication: DIABETES MELLITUS
     Route: 048
     Dates: start: 20050214, end: 20050301
  2. TAMIFLU [Suspect]
     Route: 048
     Dates: start: 20050221, end: 20050226
  3. DIAMICRON [Suspect]
     Route: 048
     Dates: end: 20050306
  4. APROVEL [Concomitant]
     Route: 048
     Dates: end: 20050306
  5. REMINYL [Concomitant]
     Route: 048
     Dates: end: 20050220

REACTIONS (5)
  - ANURIA [None]
  - BETA HAEMOLYTIC STREPTOCOCCAL INFECTION [None]
  - PSEUDOMONAS INFECTION [None]
  - STAPHYLOCOCCAL INFECTION [None]
  - TOXIC EPIDERMAL NECROLYSIS [None]
